FAERS Safety Report 8922328 (Version 2)
Quarter: 2012Q4

REPORT INFORMATION
  Report Type: Report from Study
  Country: US (occurrence: US)
  Receive Date: 20121126
  Receipt Date: 20121203
  Transmission Date: 20130627
  Serious: Yes (Hospitalization)
  Sender: FDA-Public Use
  Company Number: US-009507513-1211USA008810

PATIENT
  Age: 75 Year
  Sex: Male
  Weight: 88 kg

DRUGS (7)
  1. TEMODAR [Suspect]
     Indication: GLIOBLASTOMA MULTIFORME
  2. TARCEVA [Suspect]
     Indication: GLIOBLASTOMA MULTIFORME
     Dosage: 150 mg, qd
     Route: 048
     Dates: start: 20090126
  3. SINGULAIR [Concomitant]
     Dosage: UNK
     Dates: start: 2001
  4. QVAR [Concomitant]
     Dosage: UNK
     Dates: start: 2001
  5. ADVAIR [Concomitant]
     Dosage: UNK
     Dates: start: 2001
  6. DUONEB [Concomitant]
     Dosage: UNK
     Dates: start: 2001
  7. ZOFRAN [Concomitant]

REACTIONS (2)
  - Pneumonia [Recovered/Resolved]
  - Deep vein thrombosis [Recovering/Resolving]
